FAERS Safety Report 5867766-5 (Version None)
Quarter: 2008Q3

REPORT INFORMATION
  Report Type: 
  Country: None (occurrence: None)
  Receive Date: 20080902
  Receipt Date: 20080826
  Transmission Date: 20090109
  Serious: Yes (Other)
  Sender: FDA-Public Use
  Company Number: JP-PFIZER INC-2008071846

PATIENT
  Age: 58 Year
  Sex: Female

DRUGS (2)
  1. XALATAN [Suspect]
     Indication: OPEN ANGLE GLAUCOMA
     Route: 047
  2. TIMOPTOL-XE [Suspect]
     Indication: OPEN ANGLE GLAUCOMA
     Route: 047

REACTIONS (2)
  - INTRAOCULAR PRESSURE INCREASED [None]
  - KERATITIS HERPETIC [None]
